FAERS Safety Report 4457778-0 (Version None)
Quarter: 2004Q3

REPORT INFORMATION
  Report Type: 
  Country: None (occurrence: None)
  Receive Date: 20040917
  Receipt Date: 20031212
  Transmission Date: 20050211
  Serious: Yes (Other)
  Sender: FDA-Public Use
  Company Number: NSADSS2003005052

PATIENT
  Age: 60 Year
  Sex: Male
  Weight: 117.9352 kg

DRUGS (15)
  1. TOPAMAX [Suspect]
     Indication: ESSENTIAL TREMOR
     Dosage: 25 MG,  IN 1 DAY, ORAL
     Route: 048
  2. EFFEXOR [Concomitant]
  3. NITROGLYCERIN [Concomitant]
  4. IMDUR [Concomitant]
  5. LASIX [Concomitant]
  6. PULMACORT (BUDESONIDE) [Concomitant]
  7. CELEBREX [Concomitant]
  8. DIGOXIN [Concomitant]
  9. PROTONIX [Concomitant]
  10. PRIMIDONE [Concomitant]
  11. COZAAR [Concomitant]
  12. ASPIRIN [Concomitant]
  13. LIPITOR [Concomitant]
  14. LOPRESSOR [Concomitant]
  15. ATIVAN [Concomitant]

REACTIONS (1)
  - GLAUCOMA [None]
